FAERS Safety Report 6042560-3 (Version None)
Quarter: 2009Q1

REPORT INFORMATION
  Report Type: 
  Country: None (occurrence: None)
  Receive Date: 20090119
  Receipt Date: 20090114
  Transmission Date: 20090719
  Serious: Yes (Other)
  Sender: FDA-Public Use
  Company Number: PT-RANBAXY-2009RR-20521

PATIENT
  Sex: Female

DRUGS (8)
  1. CLARITHROMYCIN [Suspect]
     Indication: RESPIRATORY TRACT INFECTION
     Dosage: 500 MG, UNK
  2. SIMVASTATIN [Concomitant]
     Dosage: 20 MG, UNK
  3. LISINOPRIL [Concomitant]
     Dosage: 20 MG, UNK
  4. DILTIAZEM [Concomitant]
     Dosage: 180 MG, UNK
  5. PAROXETINE [Concomitant]
     Dosage: 20 MG, UNK
  6. NITROGLICERINE [Concomitant]
     Dosage: 5 MG, UNK
  7. FLUTICASONE, SALMETOROL [Concomitant]
  8. ESOMEPRAZOLE [Concomitant]
     Dosage: 40 MG, UNK

REACTIONS (4)
  - ARRHYTHMIA [None]
  - FATIGUE [None]
  - HEADACHE [None]
  - TACHYCARDIA [None]
